FAERS Safety Report 8917593 (Version 2)
Quarter: 2012Q4

REPORT INFORMATION
  Report Type: 
  Country: ZA (occurrence: ZA)
  Receive Date: 20121120
  Receipt Date: 20121130
  Transmission Date: 20130627
  Serious: Yes (Other)
  Sender: FDA-Public Use
  Company Number: ZA-JNJFOC-20121105129

PATIENT
  Sex: Male
  Weight: 69 kg

DRUGS (2)
  1. REVELLEX [Suspect]
     Indication: CROHN^S DISEASE
     Route: 042
     Dates: start: 20070926
  2. AZAPRESS [Concomitant]
     Route: 065

REACTIONS (1)
  - Crohn^s disease [Unknown]
